FAERS Safety Report 7396728-4 (Version None)
Quarter: 2011Q2

REPORT INFORMATION
  Report Type: 
  Country: None (occurrence: None)
  Receive Date: 20110406
  Receipt Date: 20110325
  Transmission Date: 20111010
  Serious: Yes (Hospitalization)
  Sender: FDA-Public Use
  Company Number: IT-ROCHE-766819

PATIENT
  Sex: Male

DRUGS (1)
  1. SYNFLEX [Suspect]
     Route: 048
     Dates: start: 20110313, end: 20110313

REACTIONS (4)
  - VOMITING [None]
  - DYSPHAGIA [None]
  - DIARRHOEA [None]
  - PRURITUS GENERALISED [None]
